FAERS Safety Report 7104936-2 (Version None)
Quarter: 2010Q4

REPORT INFORMATION
  Report Type: 
  Country: None (occurrence: None)
  Receive Date: 20101110
  Receipt Date: 20101028
  Transmission Date: 20110411
  Serious: Yes (Death)
  Sender: FDA-Public Use
  Company Number: 021449

PATIENT
  Age: 44 Year
  Sex: Male

DRUGS (7)
  1. LEVETIRACETAM [Suspect]
  2. CAFFEINE [Suspect]
  3. AMITRIPTYLINE [Concomitant]
  4. LAMOTRIGINE [Concomitant]
  5. FENTANYL [Concomitant]
  6. PHENOBARBITAL [Concomitant]
  7. CITALOPRAM [Concomitant]

REACTIONS (3)
  - ARRHYTHMIA [None]
  - DRUG TOXICITY [None]
  - UNRESPONSIVE TO STIMULI [None]
